FAERS Safety Report 23718479 (Version 2)
Quarter: 2024Q3

REPORT INFORMATION
  Report Type: Spontaneous
  Country: US (occurrence: US)
  Receive Date: 20240408
  Receipt Date: 20240821
  Transmission Date: 20241016
  Serious: Yes (Hospitalization, Other)
  Sender: SANOFI AVENTIS
  Company Number: US-SA-SAC20240405000052

PATIENT
  Age: 24 Year
  Sex: Female
  Weight: 74.8 kg

DRUGS (26)
  1. DUPIXENT [Suspect]
     Active Substance: DUPILUMAB
     Indication: Dermatitis atopic
     Dosage: 300 MG, QOW
     Route: 058
     Dates: end: 2024
  2. DUPIXENT [Suspect]
     Active Substance: DUPILUMAB
     Indication: Multiple sclerosis
  3. TRIAMCINOLONE ACETONIDE [Concomitant]
     Active Substance: TRIAMCINOLONE ACETONIDE
  4. TRIAMCINOLONE ACETONIDE [Concomitant]
     Active Substance: TRIAMCINOLONE ACETONIDE
  5. OMEPRAZOLE [Concomitant]
     Active Substance: OMEPRAZOLE
  6. OMEPRAZOLE [Concomitant]
     Active Substance: OMEPRAZOLE
  7. DICYCLOMINE HYDROCHLORIDE [Concomitant]
     Active Substance: DICYCLOMINE HYDROCHLORIDE
  8. DICYCLOMINE HYDROCHLORIDE [Concomitant]
     Active Substance: DICYCLOMINE HYDROCHLORIDE
  9. GABAPENTIN [Concomitant]
     Active Substance: GABAPENTIN
  10. GABAPENTIN [Concomitant]
     Active Substance: GABAPENTIN
  11. HYOSCYAMINE SULFATE [Concomitant]
     Active Substance: HYOSCYAMINE SULFATE
  12. HYOSCYAMINE SULFATE [Concomitant]
     Active Substance: HYOSCYAMINE SULFATE
  13. LACTULOSE [Concomitant]
     Active Substance: LACTULOSE
  14. LACTULOSE [Concomitant]
     Active Substance: LACTULOSE
  15. ALBUTEROL SULFATE [Concomitant]
     Active Substance: ALBUTEROL SULFATE
  16. ALBUTEROL SULFATE [Concomitant]
     Active Substance: ALBUTEROL SULFATE
  17. TRULANCE [Concomitant]
     Active Substance: PLECANATIDE
  18. TRULANCE [Concomitant]
     Active Substance: PLECANATIDE
  19. VITAMIN D2 [Concomitant]
     Active Substance: ERGOCALCIFEROL
  20. VITAMIN D2 [Concomitant]
     Active Substance: ERGOCALCIFEROL
  21. LINZESS [Concomitant]
     Active Substance: LINACLOTIDE
  22. LINZESS [Concomitant]
     Active Substance: LINACLOTIDE
  23. AMITRIPTYLINE HYDROCHLORIDE [Concomitant]
     Active Substance: AMITRIPTYLINE HYDROCHLORIDE
  24. AMITRIPTYLINE HYDROCHLORIDE [Concomitant]
     Active Substance: AMITRIPTYLINE HYDROCHLORIDE
  25. KESIMPTA [Concomitant]
     Active Substance: OFATUMUMAB
  26. KESIMPTA [Concomitant]
     Active Substance: OFATUMUMAB

REACTIONS (5)
  - Multiple sclerosis [Not Recovered/Not Resolved]
  - Dermatitis atopic [Recovering/Resolving]
  - Inappropriate schedule of product administration [Unknown]
  - Product use in unapproved indication [Unknown]
  - Maternal exposure during pregnancy [Unknown]

NARRATIVE: CASE EVENT DATE: 20240301
